FAERS Safety Report 24899334 (Version 1)
Quarter: 2025Q1

REPORT INFORMATION
  Report Type: Spontaneous
  Country: US (occurrence: None)
  Receive Date: 20250128
  Receipt Date: 20250128
  Transmission Date: 20250409
  Serious: Yes (unspecified)
  Sender: FDA-CTU
  Company Number: None

PATIENT
  Age: 56 Year
  Sex: Female
  Weight: 98 kg

DRUGS (1)
  1. FERUMOXYTOL [Suspect]
     Active Substance: FERUMOXYTOL
     Indication: Iron deficiency anaemia
     Dosage: OTHER FREQUENCY : WEEKLY;?
     Route: 040
     Dates: start: 20250117, end: 20250128

REACTIONS (6)
  - Infusion related reaction [None]
  - Erythema [None]
  - Blood pressure increased [None]
  - Nausea [None]
  - Hyperhidrosis [None]
  - Photopsia [None]

NARRATIVE: CASE EVENT DATE: 20250128
